FAERS Safety Report 14753992 (Version 16)
Quarter: 2019Q4

REPORT INFORMATION
  Report Type: Report from Study
  Country: US (occurrence: US)
  Receive Date: 20180412
  Receipt Date: 20191218
  Transmission Date: 20200122
  Serious: Yes (Hospitalization)
  Sender: FDA-Public Use
  Company Number: US-ACTELION-A-US2018-168665

PATIENT
  Age: 61 Year
  Sex: Female
  Weight: 72.56 kg

DRUGS (3)
  1. VELETRI [Suspect]
     Active Substance: EPOPROSTENOL
     Indication: PULMONARY HYPERTENSION
     Dosage: 38 NG/KG, PER MIN
     Route: 042
  2. VELETRI [Suspect]
     Active Substance: EPOPROSTENOL
     Dosage: 24 NG/KG, PER MIN
     Route: 042
  3. VELETRI [Suspect]
     Active Substance: EPOPROSTENOL
     Dosage: 40 NG/KG, PER MIN
     Route: 042

REACTIONS (29)
  - Gout [Unknown]
  - Muscle tightness [Unknown]
  - Catheter site erythema [Unknown]
  - Abdominal discomfort [Unknown]
  - Tachycardia [Unknown]
  - Clostridium difficile infection [Unknown]
  - Application site rash [Unknown]
  - Flushing [Not Recovered/Not Resolved]
  - Asthenia [Unknown]
  - Application site hypersensitivity [Unknown]
  - Condition aggravated [Unknown]
  - Headache [Unknown]
  - Diarrhoea [Recovering/Resolving]
  - Pain in extremity [Unknown]
  - Breath sounds abnormal [Unknown]
  - Catheter site pruritus [Unknown]
  - Back pain [Unknown]
  - Oedema peripheral [Unknown]
  - Arthralgia [Unknown]
  - Abdominal pain upper [Unknown]
  - Erythema [Unknown]
  - Dyspnoea exertional [Unknown]
  - Cataract [Unknown]
  - Pain in jaw [Unknown]
  - Rash macular [Unknown]
  - Rash pruritic [Unknown]
  - Pain [Unknown]
  - Abdominal distension [Unknown]
  - Hospitalisation [Unknown]

NARRATIVE: CASE EVENT DATE: 20180301
